FAERS Safety Report 9798584 (Version 1)
Quarter: 2013Q4

REPORT INFORMATION
  Report Type: Spontaneous
  Country: FR (occurrence: None)
  Receive Date: 20131231
  Receipt Date: 20131231
  Transmission Date: 20140711
  Serious: Yes (Hospitalization)
  Sender: FDA-Public Use
  Company Number: 1970183

PATIENT
  Age: 73 Year
  Sex: Female

DRUGS (7)
  1. CARBOPLATIN [Suspect]
     Indication: PRODUCT USED FOR UNKNOWN INDICATION
     Route: 042
     Dates: start: 20110210, end: 20110210
  2. SOLUMEDROL [Concomitant]
  3. POLARAMINE [Concomitant]
  4. AVASTIN [Concomitant]
  5. ZOPHREN [Concomitant]
  6. TAXOL [Concomitant]
  7. AZANTAC [Concomitant]

REACTIONS (2)
  - Hyperhidrosis [None]
  - Oxygen saturation decreased [None]
